FAERS Safety Report 4679316-X (Version None)
Quarter: 2005Q2

REPORT INFORMATION
  Report Type: 
  Country: None (occurrence: None)
  Receive Date: 20050602
  Receipt Date: 20050422
  Transmission Date: 20051028
  Serious: Yes (Hospitalization, Other)
  Sender: FDA-Public Use
  Company Number: US-BRISTOL-MYERS SQUIBB COMPANY-12944922

PATIENT
  Age: 51 Year
  Sex: Male

DRUGS (6)
  1. CETUXIMAB [Suspect]
     Indication: LUNG CANCER METASTATIC
     Dosage: 1ST CETUXIMAB INFUSION ADMINISTERED ON 08-APR-2005. DOSE DELAYED/OMITTED.
     Route: 042
     Dates: start: 20050415, end: 20050415
  2. CARBOPLATIN [Suspect]
     Indication: LUNG CANCER METASTATIC
     Dosage: 1ST AND MOST RECENT CARBOPLATIN INFUSION ADMINISTERED ON 08-APR-2005. DELAYED/OMITTED.
     Route: 042
     Dates: start: 20050408, end: 20050408
  3. GEMCITABINE [Suspect]
     Indication: LUNG CANCER METASTATIC
     Dosage: 1ST GEMCITABINE INFUSION ADMINISTERED ON 08-APR-2005. DOSE DELAYED/OMITTED.
     Route: 042
     Dates: start: 20050415, end: 20050415
  4. KYTRIL [Concomitant]
     Dates: start: 20050408, end: 20050415
  5. DECADRON [Concomitant]
     Dates: start: 20050408, end: 20050415
  6. NEOSPORIN [Concomitant]
     Dates: start: 20050417, end: 20050501

REACTIONS (6)
  - FEBRILE NEUTROPENIA [None]
  - HAEMOPTYSIS [None]
  - MALAISE [None]
  - MUCOSAL INFLAMMATION [None]
  - PANCYTOPENIA [None]
  - RASH [None]
